FAERS Safety Report 5244086-3 (Version None)
Quarter: 2007Q1

REPORT INFORMATION
  Report Type: 
  Country: None (occurrence: None)
  Receive Date: 20070222
  Receipt Date: 20070215
  Transmission Date: 20070707
  Serious: Yes (Hospitalization, Other)
  Sender: FDA-Public Use
  Company Number: GB-ALLERGAN-0701665US

PATIENT
  Age: 53 Year
  Sex: Female

DRUGS (1)
  1. BOTULINUM TOXIN TYPE A UNK [Suspect]
     Indication: KERATITIS
     Route: 030

REACTIONS (3)
  - DIPLOPIA [None]
  - EYELID PTOSIS [None]
  - STRABISMUS [None]
